FAERS Safety Report 4379906-8 (Version None)
Quarter: 2004Q2

REPORT INFORMATION
  Report Type: 
  Country: None (occurrence: None)
  Receive Date: 20040614
  Receipt Date: 20040607
  Transmission Date: 20050107
  Serious: Yes (Death)
  Sender: FDA-Public Use
  Company Number: 402725410/PHRM2004FR02002

PATIENT
  Age: 75 Year
  Sex: Male

DRUGS (3)
  1. AK-FLUOR INJECTION, 10%, AKORN [Suspect]
     Indication: ANGIOGRAM RETINA
     Dosage: IV
     Route: 042
     Dates: start: 20040604
  2. AVLOCARDYL [Concomitant]
  3. SERETIDE, GLAXO (SALMETEROL XINAROATE) [Concomitant]

REACTIONS (12)
  - ANAPHYLACTIC SHOCK [None]
  - COMA [None]
  - CYANOSIS [None]
  - DRUG INEFFECTIVE [None]
  - DYSPNOEA [None]
  - HYPERTENSION [None]
  - INTRACARDIAC THROMBUS [None]
  - LOSS OF CONSCIOUSNESS [None]
  - MALAISE [None]
  - RESPIRATORY DISORDER [None]
  - SALIVARY HYPERSECRETION [None]
  - VASODILATATION [None]
